FAERS Safety Report 17263108 (Version 1)
Quarter: 2019Q4

REPORT INFORMATION
  Report Type: Spontaneous
  Country: US (occurrence: US)
  Receive Date: 20191219
  Receipt Date: 20191219
  Transmission Date: 20200122
  Serious: Yes (Hospitalization)
  Sender: FDA-Public Use
  Company Number: None

PATIENT
  Age: 72 Year
  Sex: Male
  Weight: 58.4 kg

DRUGS (24)
  1. THALIDOMIDE AND DEXAMETHASONE WITH VGPR [Concomitant]
  2. VASOTEC [Concomitant]
     Active Substance: ENALAPRIL MALEATE
  3. CARFILZOMIB 27MG/M2 [Suspect]
     Active Substance: CARFILZOMIB
     Indication: PLASMA CELL MYELOMA
     Route: 042
     Dates: start: 20191122, end: 20191210
  4. REVLIMID+DEXAMETHASONE [Concomitant]
  5. POMALIDOMIDE, DEXAMETHASONE AND BIAXIN [Concomitant]
  6. MIK665 (MCL-1 INHIBITOR) [Concomitant]
  7. VELCADE [Concomitant]
     Active Substance: BORTEZOMIB
  8. DARATUMUMAB [Concomitant]
     Active Substance: DARATUMUMAB
  9. TRANSPLANT/CELLULAR THERAPY HIGH DOSE MELPHALAN WITH STEM CELL TRANSPL [Concomitant]
  10. TRANSPLANT/CELLULAR THERAPY HIGH DOSE MELPHALAN WITH STEM CELL TRANSPL [Concomitant]
  11. VELCADE+DEXAMETHASONE [Concomitant]
  12. PANOBINOSTAT+CARFILZOMIB [Concomitant]
  13. HYPERCYTOXAN, DARATUMUMAB, CHOLESTYRAMINE (QUESTRAN) [Concomitant]
  14. ENTECAVIR (BARACLUDE) [Concomitant]
  15. HYPER CYTOXAN DEXAMETHASONE [Concomitant]
  16. ELOTUZUMAB, CARFILZOMIB, POMALIDOMIDE, DEXAMETHASONE [Concomitant]
  17. DEXTROMETHORPHAN POLISTIREX (DELSYM 12 HOUR) [Concomitant]
  18. REVLIMID [Concomitant]
     Active Substance: LENALIDOMIDE
  19. PEMBROLIZUMAB. [Concomitant]
     Active Substance: PEMBROLIZUMAB
  20. DAPSONE. [Concomitant]
     Active Substance: DAPSONE
  21. CABOZANTINIB [Suspect]
     Active Substance: CABOZANTINIB
     Indication: PLASMA CELL MYELOMA
     Route: 048
     Dates: start: 20191122, end: 20191212
  22. ARRY-520 AND CARFILZOMIB [Concomitant]
  23. CARFILZOMIB, BENDAMUSTINE AND DEXAMETHASONE [Concomitant]
  24. AMG224 (BCMA ANTIBODY) [Concomitant]

REACTIONS (6)
  - Hypertension [None]
  - Thrombocytopenia [None]
  - Blood urine present [None]
  - Platelet count decreased [None]
  - Haemoglobin decreased [None]
  - Infection [None]

NARRATIVE: CASE EVENT DATE: 20191212
